FAERS Safety Report 8820094 (Version 2)
Quarter: 2012Q4

REPORT INFORMATION
  Report Type: Report from Study
  Country: JP (occurrence: JP)
  Receive Date: 20121001
  Receipt Date: 20121231
  Transmission Date: 20130627
  Serious: Yes (Hospitalization)
  Sender: FDA-Public Use
  Company Number: JP-009507513-1202USA00929

PATIENT
  Age: 70 Year
  Sex: Male

DRUGS (10)
  1. ZOLINZA [Suspect]
     Indication: MYCOSIS FUNGOIDES
     Dosage: 400 mg, qd
     Route: 048
     Dates: start: 20120119, end: 20120126
  2. ZOLINZA [Suspect]
     Dosage: 300 mg, qd
     Route: 048
     Dates: start: 20120214, end: 20120228
  3. ZOLINZA [Suspect]
     Dosage: once a day, 5 times / week
     Route: 048
     Dates: start: 20120313, end: 20120325
  4. TIGASON [Concomitant]
     Indication: MYCOSIS FUNGOIDES
     Dosage: 10 mg, tid
     Route: 048
     Dates: start: 20110906
  5. BROTIZOLAM [Concomitant]
     Indication: INSOMNIA
     Dosage: 0.25 mg, qd
     Route: 048
  6. FERROMIA [Concomitant]
     Indication: NEPHROGENIC ANAEMIA
     Dosage: 50 mg, qd
     Route: 048
  7. MINOMYCIN [Concomitant]
     Indication: SKIN ULCER
     Dosage: 50 mg, bid
     Route: 048
  8. FAMOTIDINE [Concomitant]
     Indication: PROPHYLAXIS
     Dosage: 10 mg, qd
     Route: 048
  9. CALONAL [Concomitant]
     Indication: INFLAMMATION
     Dosage: 200 mg, qid
     Route: 048
  10. ARGAMATE JELLY [Concomitant]
     Indication: HYPERKALAEMIA
     Dosage: 25 g, tid
     Route: 048

REACTIONS (10)
  - Renal failure [Recovering/Resolving]
  - Decreased appetite [Recovering/Resolving]
  - Dehydration [Recovering/Resolving]
  - Nausea [Recovering/Resolving]
  - Malaise [Recovering/Resolving]
  - Dehydration [Recovering/Resolving]
  - Renal failure [Recovering/Resolving]
  - Decreased appetite [Recovering/Resolving]
  - Nausea [Recovering/Resolving]
  - Malaise [Recovering/Resolving]
